FAERS Safety Report 8810962 (Version 1)
Quarter: 2012Q4

REPORT INFORMATION
  Report Type: 
  Country: MY (occurrence: MY)
  Receive Date: 20120927
  Receipt Date: 20120927
  Transmission Date: 20130627
  Serious: Yes (Other)
  Sender: FDA-Public Use
  Company Number: MY-RANBAXY-2012R3-60103

PATIENT
  Age: 52 Year
  Sex: Male

DRUGS (1)
  1. VAMLO [Suspect]
     Indication: HYPERTENSION
     Dosage: 5 mg daily
     Route: 048

REACTIONS (4)
  - Oropharyngeal pain [Recovered/Resolved]
  - Lip swelling [Recovered/Resolved]
  - Tongue oedema [Recovered/Resolved]
  - Hypoaesthesia oral [Recovered/Resolved]
